FAERS Safety Report 7440093-0 (Version None)
Quarter: 2011Q2

REPORT INFORMATION
  Report Type: 
  Country: None (occurrence: None)
  Receive Date: 20110427
  Receipt Date: 20110419
  Transmission Date: 20111010
  Serious: Yes (Death, Hospitalization, Other)
  Sender: FDA-Public Use
  Company Number: US-CELGENEUS-163-21880-11022081

PATIENT
  Sex: Male

DRUGS (4)
  1. REVLIMID [Suspect]
     Dosage: 10 MILLIGRAM
     Route: 048
     Dates: start: 20101201
  2. PHOSLO [Concomitant]
     Indication: BLOOD PHOSPHORUS INCREASED
     Route: 065
  3. ANTIBIOTICS [Concomitant]
     Route: 051
  4. REVLIMID [Suspect]
     Indication: MULTIPLE MYELOMA
     Dosage: 10 MILLIGRAM
     Route: 048
     Dates: start: 20100201

REACTIONS (3)
  - RENAL FAILURE ACUTE [None]
  - PNEUMONIA KLEBSIELLA [None]
  - MULTIPLE MYELOMA [None]
